FAERS Safety Report 6842722-9 (Version None)
Quarter: 2010Q3

REPORT INFORMATION
  Report Type: 
  Country: None (occurrence: None)
  Receive Date: 20100714
  Receipt Date: 20070804
  Transmission Date: 20110219
  Serious: No
  Sender: FDA-Public Use
  Company Number: US-PFIZER INC-2007064171

PATIENT
  Age: 80 Year
  Sex: Male

DRUGS (1)
  1. CHANTIX [Suspect]

REACTIONS (5)
  - CONSTIPATION [None]
  - FATIGUE [None]
  - MALAISE [None]
  - NAUSEA [None]
  - SLEEP DISORDER [None]
